FAERS Safety Report 6579513-2 (Version None)
Quarter: 2010Q1

REPORT INFORMATION
  Report Type: 
  Country: None (occurrence: None)
  Receive Date: 20100212
  Receipt Date: 20100201
  Transmission Date: 20100710
  Serious: Yes (Hospitalization)
  Sender: FDA-Public Use
  Company Number: US-WYE-H13295310

PATIENT
  Sex: Female

DRUGS (2)
  1. PRISTIQ [Suspect]
     Indication: DEPRESSION
     Dosage: UNKNOWN
     Route: 048
     Dates: start: 20090629
  2. SAVELLA [Suspect]
     Indication: FIBROMYALGIA
     Dosage: UNKNOWN
     Route: 048
     Dates: start: 20091215, end: 20091230

REACTIONS (5)
  - BIPOLAR DISORDER [None]
  - PANIC ATTACK [None]
  - PSYCHOTIC DISORDER [None]
  - SUICIDAL IDEATION [None]
  - TREMOR [None]
